FAERS Safety Report 13072114 (Version 1)
Quarter: 2016Q4

REPORT INFORMATION
  Report Type: Spontaneous
  Country: KR (occurrence: KR)
  Receive Date: 20161229
  Receipt Date: 20161229
  Transmission Date: 20170207
  Serious: Yes (Other)
  Sender: FDA-Public Use
  Company Number: KR-009507513-1612KOR012425

PATIENT
  Age: 61 Year
  Sex: Male

DRUGS (1)
  1. ONCOTICE [Suspect]
     Active Substance: BACILLUS CALMETTE-GUERIN SUBSTRAIN TICE LIVE ANTIGEN
     Indication: BLADDER CANCER
     Dosage: 12.5 MG IN 50 ML NORMAL SALINE ONCE A WEEK
     Route: 043

REACTIONS (2)
  - Prostatic abscess [Recovered/Resolved]
  - Fistula [Recovered/Resolved]
